FAERS Safety Report 17945867 (Version 2)
Quarter: 2020Q4

REPORT INFORMATION
  Report Type: Spontaneous
  Country: DE (occurrence: DE)
  Receive Date: 20200626
  Receipt Date: 20201026
  Transmission Date: 20210113
  Serious: Yes (Hospitalization, Other)
  Sender: FDA-Public Use
  Company Number: DE-ROCHE-2626911

PATIENT
  Age: 30 Year
  Sex: Female

DRUGS (5)
  1. OCREVUS [Suspect]
     Active Substance: OCRELIZUMAB
     Route: 042
     Dates: start: 20200311
  2. OCREVUS [Suspect]
     Active Substance: OCRELIZUMAB
     Indication: RELAPSING MULTIPLE SCLEROSIS
     Route: 042
     Dates: start: 20190301
  3. OCREVUS [Suspect]
     Active Substance: OCRELIZUMAB
     Route: 042
     Dates: start: 20190312
  4. OCREVUS [Suspect]
     Active Substance: OCRELIZUMAB
     Route: 042
     Dates: start: 20190917
  5. OCREVUS [Suspect]
     Active Substance: OCRELIZUMAB
     Route: 042
     Dates: start: 20190326

REACTIONS (7)
  - Magnetic resonance imaging spinal abnormal [Unknown]
  - Meningitis aseptic [Unknown]
  - Intervertebral disc protrusion [Unknown]
  - Perineurial cyst [Unknown]
  - Meningitis viral [Recovered/Resolved]
  - Abscess oral [Unknown]
  - Chondrosis [Unknown]

NARRATIVE: CASE EVENT DATE: 201907
